FAERS Safety Report 13077574 (Version 1)
Quarter: 2016Q4

REPORT INFORMATION
  Report Type: Spontaneous
  Country: US (occurrence: US)
  Receive Date: 20161231
  Receipt Date: 20161231
  Transmission Date: 20170207
  Serious: No
  Sender: FDA-Public Use
  Company Number: US-ASTRAZENECA-2016SF35374

PATIENT
  Sex: Female

DRUGS (2)
  1. SYMBICORT [Suspect]
     Active Substance: BUDESONIDE\FORMOTEROL FUMARATE DIHYDRATE
     Dosage: 80/4.5 MCG, 2 INHALATIONS TWICE DAILY
     Route: 055
     Dates: start: 201501
  2. VENTOLIN HFA [Concomitant]
     Active Substance: ALBUTEROL SULFATE
     Dosage: AS REQUIRED
     Route: 055

REACTIONS (5)
  - Underdose [Unknown]
  - Device malfunction [Unknown]
  - Blood cholesterol increased [Unknown]
  - Intentional product misuse [Unknown]
  - Hypertension [Unknown]
